FAERS Safety Report 18127648 (Version 1)
Quarter: 2020Q3

REPORT INFORMATION
  Report Type: Spontaneous
  Country: US (occurrence: US)
  Receive Date: 20200810
  Receipt Date: 20200810
  Transmission Date: 20201103
  Serious: No
  Sender: FDA-Public Use
  Company Number: US-GLENMARK PHARMACEUTICALS-2019GMK043680

PATIENT

DRUGS (3)
  1. ONDANSETRON [Suspect]
     Active Substance: ONDANSETRON
     Indication: DIZZINESS
  2. PRIALT [Concomitant]
     Active Substance: ZICONOTIDE ACETATE
     Indication: NAUSEA
     Dosage: UNK
     Route: 065
  3. ONDANSETRON [Suspect]
     Active Substance: ONDANSETRON
     Indication: NAUSEA
     Dosage: UNK, TID (270 TABLETS EVERY 3 MONTHS)
     Route: 065

REACTIONS (1)
  - Drug effective for unapproved indication [Unknown]
